FAERS Safety Report 10474608 (Version 10)
Quarter: 2015Q2

REPORT INFORMATION
  Report Type: Report from Study
  Country: US (occurrence: US)
  Receive Date: 20140925
  Receipt Date: 20150421
  Transmission Date: 20150821
  Serious: Yes (Hospitalization)
  Sender: FDA-Public Use
  Company Number: US-009507513-1409USA010899

PATIENT
  Age: 53 Year
  Sex: Female
  Weight: 75.3 kg

DRUGS (18)
  1. FAMOTIDINE. [Concomitant]
     Active Substance: FAMOTIDINE
     Indication: NAUSEA
     Dosage: TOTAL DAILY DOSE: 20 MG, PRN
     Route: 048
     Dates: start: 20140713
  2. MK-5172A [Suspect]
     Active Substance: ELBASVIR\GRAZOPREVIR ANHYDROUS
     Indication: CHRONIC HEPATITIS C
     Dosage: 1 TABLET, QD
     Route: 048
     Dates: start: 20140702, end: 20140702
  3. TYLENOL EXTRA STRENGTH [Concomitant]
     Active Substance: ACETAMINOPHEN
     Indication: ARTHRITIS
     Dosage: TOTAL DAILY DOSE: 500 MG, PRN
     Route: 048
     Dates: start: 20140713
  4. KAOPECTATE (ATTAPULGITE, ACTIVATED) [Concomitant]
     Active Substance: ATTAPULGITE
     Indication: NAUSEA
     Dosage: TOTAL DAILY DOSE: 262 MG, PRN, FORMULATION: CAPLET
     Route: 048
     Dates: start: 20140713
  5. SIMETHICONE [Concomitant]
     Active Substance: DIMETHICONE\SILICON DIOXIDE\SIMETHICONE
     Indication: GASTROOESOPHAGEAL REFLUX DISEASE
     Dosage: TOTAL DAILY DOSE: 125 MG, PRN
     Route: 048
     Dates: start: 20140713
  6. MK-5172A [Suspect]
     Active Substance: ELBASVIR\GRAZOPREVIR ANHYDROUS
     Dosage: 1 TABLET, QD
     Route: 048
     Dates: start: 20140923, end: 20140923
  7. OMEPRAZOLE. [Concomitant]
     Active Substance: OMEPRAZOLE
     Indication: GASTROOESOPHAGEAL REFLUX DISEASE
     Dosage: 40 MG, QD
     Route: 048
     Dates: start: 20140501
  8. METOPROLOL SUCCINATE. [Concomitant]
     Active Substance: METOPROLOL SUCCINATE
     Indication: HYPERTENSION
     Dosage: 25 MG, QD
     Route: 048
     Dates: start: 200701
  9. RIBAVIRIN. [Suspect]
     Active Substance: RIBAVIRIN
     Indication: CHRONIC HEPATITIS C
     Dosage: 1 DF, QD
     Route: 048
     Dates: start: 20140702, end: 20140702
  10. TYLENOL PM [Concomitant]
     Active Substance: ACETAMINOPHEN\DIPHENHYDRAMINE
     Indication: INSOMNIA
     Dosage: TOTAL DAILY DOSE: 500 MG, PRN, FORMULATION: CAPLET
     Route: 048
     Dates: start: 20140601
  11. FLUOXETINE [Concomitant]
     Active Substance: FLUOXETINE\FLUOXETINE HYDROCHLORIDE
     Indication: DEPRESSION
     Dosage: 20 MG, QD
     Route: 048
     Dates: start: 200801
  12. MELATONIN [Concomitant]
     Active Substance: MELATONIN
     Indication: INSOMNIA
     Dosage: TOTAL DAILY DOSE: 3 MG, PRN
     Route: 048
     Dates: start: 200701
  13. RIBAVIRIN. [Suspect]
     Active Substance: RIBAVIRIN
     Dosage: 1 DF, QD
     Route: 048
     Dates: start: 20140705, end: 20140705
  14. RIBAVIRIN. [Suspect]
     Active Substance: RIBAVIRIN
     Dosage: 3 DF, QD
     Route: 048
     Dates: start: 20140910, end: 20140910
  15. RIBAVIRIN. [Suspect]
     Active Substance: RIBAVIRIN
     Dosage: 2 DF, QD
     Route: 048
     Dates: start: 20140923, end: 20140923
  16. PLAVIX [Concomitant]
     Active Substance: CLOPIDOGREL BISULFATE
     Indication: TRANSIENT ISCHAEMIC ATTACK
     Dosage: 75 MG, QD
     Route: 048
     Dates: start: 201001
  17. IMITREX [Concomitant]
     Active Substance: SUMATRIPTAN\SUMATRIPTAN SUCCINATE
     Indication: MIGRAINE
     Dosage: TOTAL DAILY DOSE: 25 MG, PRN
     Route: 048
     Dates: start: 20140725
  18. TEMAZEPAM. [Concomitant]
     Active Substance: TEMAZEPAM
     Indication: INSOMNIA
     Dosage: TOTAL DAILY DOSE: 15 MG, QD
     Route: 048
     Dates: start: 20140812, end: 20141020

REACTIONS (1)
  - Transient ischaemic attack [Recovered/Resolved with Sequelae]

NARRATIVE: CASE EVENT DATE: 20140915
